FAERS Safety Report 8585776-4 (Version None)
Quarter: 2012Q3

REPORT INFORMATION
  Report Type: 
  Country: None (occurrence: None)
  Receive Date: 20120802
  Receipt Date: 20120802
  Transmission Date: 20120928
  Serious: Yes (Life-Threatening, Hospitalization)
  Sender: FDA-Public Use
  Company Number: None

PATIENT
  Sex: Female

DRUGS (5)
  1. ORTHO-CEPT [Suspect]
     Indication: CONTRACEPTION
     Dosage: ONCE A DAY PO
     Route: 048
  2. ALLEGRA [Concomitant]
  3. AMBIEN [Concomitant]
  4. SINGULAIR [Concomitant]
  5. PROZAC [Concomitant]

REACTIONS (1)
  - PULMONARY EMBOLISM [None]
